FAERS Safety Report 12405353 (Version 1)
Quarter: 2016Q2

REPORT INFORMATION
  Report Type: Spontaneous
  Country: FR (occurrence: FR)
  Receive Date: 20160525
  Receipt Date: 20160525
  Transmission Date: 20160815
  Serious: Yes (Hospitalization)
  Sender: FDA-Public Use
  Company Number: FR-ASTRAZENECA-2016SE54260

PATIENT
  Age: 67 Year
  Sex: Male
  Weight: 90 kg

DRUGS (19)
  1. DALACINE [Suspect]
     Active Substance: CLINDAMYCIN HYDROCHLORIDE
     Indication: POST PROCEDURAL INFECTION
     Dosage: 300.0MG UNKNOWN
     Route: 048
     Dates: start: 20160223, end: 20160323
  2. ALLOPURINOL. [Concomitant]
     Active Substance: ALLOPURINOL
  3. LEXOMIL [Concomitant]
     Active Substance: BROMAZEPAM
     Dosage: 12.0MG UNKNOWN
  4. HYTACAND [Suspect]
     Active Substance: CANDESARTAN CILEXETIL\HYDROCHLOROTHIAZIDE
     Indication: HYPERTENSION
     Dosage: 16 MG/12.5 MG ONCE A DAY
     Route: 048
  5. DIAMICRON [Concomitant]
     Active Substance: GLICLAZIDE
     Dosage: 60.0MG UNKNOWN
  6. PLAVIX [Concomitant]
     Active Substance: CLOPIDOGREL BISULFATE
     Dosage: 75.0MG UNKNOWN
  7. INIPOMP [Concomitant]
     Active Substance: PANTOPRAZOLE SODIUM
     Dosage: 20.0MG UNKNOWN
  8. VANCOMYCINE [Concomitant]
     Active Substance: VANCOMYCIN
  9. OFLOCET [Suspect]
     Active Substance: OFLOXACIN
     Indication: POST PROCEDURAL INFECTION
     Dosage: 200.0MG UNKNOWN
     Route: 048
     Dates: start: 20160223, end: 20160323
  10. LERCAN [Concomitant]
     Active Substance: LERCANIDIPINE
     Dosage: 10.0MG UNKNOWN
  11. TAZOCILLINE [Concomitant]
     Active Substance: PIPERACILLIN SODIUM\TAZOBACTAM SODIUM
  12. TEMERIT [Concomitant]
     Active Substance: NEBIVOLOL
     Dosage: 5.0MG UNKNOWN
  13. PRAVASTATIN [Concomitant]
     Active Substance: PRAVASTATIN\PRAVASTATIN SODIUM
  14. XYZALL [Concomitant]
     Active Substance: LEVOCETIRIZINE DIHYDROCHLORIDE
  15. CALTRATE WITH VITAMIN D [Concomitant]
     Active Substance: CALCIUM CARBONATE\CHOLECALCIFEROL
     Dosage: 600MG/400IU
  16. DIFFU K [Concomitant]
     Active Substance: POTASSIUM CHLORIDE
  17. EUCREAS [Concomitant]
     Active Substance: METFORMIN HYDROCHLORIDE\VILDAGLIPTIN
     Dosage: 50MG/1000MG
  18. GABAPENTINE [Concomitant]
     Active Substance: GABAPENTIN
     Dosage: 300 UNKNOWN
  19. LASILIX [Concomitant]
     Active Substance: FUROSEMIDE
     Dosage: 40.0MG UNKNOWN

REACTIONS (7)
  - Orthostatic hypotension [Recovered/Resolved]
  - Suture rupture [Unknown]
  - Device dislocation [Unknown]
  - Rash [Recovered/Resolved]
  - Acute kidney injury [Recovered/Resolved]
  - Post procedural infection [Unknown]
  - Diarrhoea [Recovered/Resolved]

NARRATIVE: CASE EVENT DATE: 2016
